FAERS Safety Report 9940577 (Version 4)
Quarter: 2014Q1

REPORT INFORMATION
  Report Type: Report from Study
  Country: US (occurrence: US)
  Receive Date: 20140303
  Receipt Date: 20140321
  Transmission Date: 20141002
  Serious: Yes (Hospitalization)
  Sender: FDA-Public Use
  Company Number: US-B.I. PHARMACEUTICALS,INC./RIDGEFIELD-2013-BI-03387BP

PATIENT
  Age: 87 Year
  Sex: Male
  Weight: 60.8 kg

DRUGS (12)
  1. BIBW 2992 [Suspect]
     Indication: NON-SMALL CELL LUNG CANCER
     Dosage: 40 MG
     Route: 048
     Dates: start: 20130122
  2. BIBW 2992 [Suspect]
     Indication: LUNG NEOPLASM MALIGNANT
  3. PROSCAR [Concomitant]
     Indication: BENIGN PROSTATIC HYPERPLASIA
     Route: 048
     Dates: start: 201101
  4. NEUTRA-PHOS [Concomitant]
     Indication: METASTASES TO BONE
     Dosage: 500 MG
     Route: 048
     Dates: start: 201208
  5. NEUTRA-PHOS [Concomitant]
     Route: 065
  6. DENOSUNAB [Concomitant]
     Indication: METASTASES TO BONE
     Route: 058
     Dates: start: 201201
  7. MEGESTROL [Concomitant]
     Indication: DECREASED APPETITE
     Route: 048
     Dates: start: 201210
  8. PRAVASTATIN [Concomitant]
     Indication: HYPERCHOLESTEROLAEMIA
     Dosage: 40 MG
     Route: 048
     Dates: start: 199801
  9. VIT D [Concomitant]
     Indication: SUPPLEMENTATION THERAPY
     Dosage: 2000 U
     Route: 048
     Dates: start: 201208
  10. OMEGA 3 [Concomitant]
     Indication: SUPPLEMENTATION THERAPY
     Route: 048
     Dates: start: 201208
  11. PHOSPHA 250 NEUTRAL [Concomitant]
     Indication: METASTASES TO BONE
     Route: 048
     Dates: start: 201208
  12. ZOFRAN [Concomitant]
     Indication: NAUSEA
     Route: 048
     Dates: start: 201105

REACTIONS (4)
  - Gastroenteritis [Recovered/Resolved]
  - Anaemia [Recovered/Resolved]
  - Diarrhoea [Recovered/Resolved]
  - Dermatitis acneiform [Not Recovered/Not Resolved]
